FAERS Safety Report 4361139-2 (Version None)
Quarter: 2004Q2

REPORT INFORMATION
  Report Type: 
  Country: None (occurrence: None)
  Receive Date: 20040511
  Receipt Date: 20040115
  Transmission Date: 20050107
  Serious: Yes (Hospitalization)
  Sender: FDA-Public Use
  Company Number: USA040156731

PATIENT
  Age: 48 Year
  Sex: Female

DRUGS (8)
  1. PROZAC [Suspect]
     Indication: DEPRESSION
     Dosage: 40 MG
     Dates: start: 19900101
  2. KLONOPIN [Concomitant]
  3. CLONIDINE HCL [Concomitant]
  4. RISPERDAL [Concomitant]
  5. LEXAPRO [Concomitant]
  6. SERZONE [Concomitant]
  7. XANAX [Concomitant]
  8. TOPAMAX [Concomitant]

REACTIONS (3)
  - AGITATION [None]
  - MEMORY IMPAIRMENT [None]
  - SUICIDE ATTEMPT [None]
